APPROVED DRUG PRODUCT: ERGOTAMINE TARTRATE AND CAFFEINE
Active Ingredient: CAFFEINE; ERGOTAMINE TARTRATE
Strength: 100MG;1MG
Dosage Form/Route: TABLET;ORAL
Application: A040510 | Product #001
Applicant: HIKMA INTERNATIONAL PHARMACEUTICALS LLC
Approved: Sep 17, 2004 | RLD: No | RS: No | Type: DISCN